FAERS Safety Report 9426366 (Version 1)
Quarter: 2013Q3

REPORT INFORMATION
  Report Type: Spontaneous
  Country: US (occurrence: US)
  Receive Date: 20130730
  Receipt Date: 20130730
  Transmission Date: 20140515
  Serious: No
  Sender: FDA-Public Use
  Company Number: US-009507513-1306USA006836

PATIENT
  Age: 6 Year
  Sex: Female
  Weight: 22.22 kg

DRUGS (1)
  1. AZASITE [Suspect]
     Indication: CONJUNCTIVITIS
     Dosage: ONE DROP IN EACH EYE FOR FIVE DAYS
     Route: 047
     Dates: start: 20130612

REACTIONS (3)
  - Drug dose omission [Unknown]
  - Inappropriate schedule of drug administration [Unknown]
  - No adverse event [Unknown]
